FAERS Safety Report 8337097-2 (Version None)
Quarter: 2012Q2

REPORT INFORMATION
  Report Type: 
  Country: None (occurrence: None)
  Receive Date: 20120504
  Receipt Date: 20120416
  Transmission Date: 20120825
  Serious: Yes (Other)
  Sender: FDA-Public Use
  Company Number: PHHY2012CA033275

PATIENT

DRUGS (1)
  1. GILENYA [Suspect]
     Indication: MULTIPLE SCLEROSIS
     Dosage: UNK UKN, UNK
     Route: 048

REACTIONS (6)
  - SKIN LESION [None]
  - WEIGHT INCREASED [None]
  - PSORIASIS [None]
  - PSORIATIC ARTHROPATHY [None]
  - HEART RATE DECREASED [None]
  - ACNE [None]
